FAERS Safety Report 11282007 (Version 1)
Quarter: 2015Q3

REPORT INFORMATION
  Report Type: Spontaneous
  Country: CN (occurrence: CN)
  Receive Date: 20150718
  Receipt Date: 20150718
  Transmission Date: 20151125
  Serious: Yes (Other)
  Sender: FDA-Public Use
  Company Number: CN-JNJFOC-20150705256

PATIENT
  Age: 52 Year
  Sex: Male
  Weight: 52 kg

DRUGS (3)
  1. IBUPROFEN. [Suspect]
     Active Substance: IBUPROFEN
     Indication: POSTOPERATIVE FEVER
     Route: 048
     Dates: start: 20150124, end: 20150127
  2. CEFAZOLIN SODIUM. [Suspect]
     Active Substance: CEFAZOLIN SODIUM
     Indication: PROPHYLAXIS
     Route: 042
     Dates: start: 20150122, end: 20150125
  3. FORTUM [Suspect]
     Active Substance: CEFTAZIDIME
     Indication: PROPHYLAXIS
     Route: 042
     Dates: start: 20150126, end: 20150129

REACTIONS (3)
  - Neutropenia [Unknown]
  - Leukopenia [Unknown]
  - Lymphopenia [Unknown]

NARRATIVE: CASE EVENT DATE: 20150126
